FAERS Safety Report 8277546-1 (Version None)
Quarter: 2012Q2

REPORT INFORMATION
  Report Type: 
  Country: None (occurrence: None)
  Receive Date: 20120412
  Receipt Date: 20120406
  Transmission Date: 20120825
  Serious: Yes (Death, Hospitalization)
  Sender: FDA-Public Use
  Company Number: US-MERCK-1203USA01752

PATIENT
  Age: 82 Year
  Sex: Female
  Weight: 40 kg

DRUGS (25)
  1. VELCADE [Suspect]
     Route: 058
     Dates: start: 20120202, end: 20120209
  2. SIMETHICONE [Concomitant]
     Route: 048
  3. VANCOMYCIN [Concomitant]
     Route: 048
  4. VELCADE [Suspect]
     Route: 058
     Dates: start: 20120111, end: 20120118
  5. NEURONTIN [Concomitant]
     Route: 048
  6. OXYCODONE HYDROCHLORIDE [Concomitant]
     Route: 048
  7. SUCRALFATE [Concomitant]
     Route: 048
  8. ZOLINZA [Suspect]
     Route: 048
     Dates: start: 20120202, end: 20120201
  9. EXTRA STRENGTH TYLENOL [Concomitant]
     Route: 048
  10. ZOLINZA [Suspect]
     Route: 048
     Dates: start: 20120111, end: 20120118
  11. CARAFATE [Concomitant]
     Route: 048
  12. LANOXIN [Concomitant]
     Route: 048
  13. MILK OF MAGNESIA TAB [Concomitant]
     Route: 048
     Dates: start: 20111113
  14. VITAMINS (UNSPECIFIED) [Concomitant]
     Route: 065
  15. ZOLINZA [Suspect]
     Indication: MULTIPLE MYELOMA
     Route: 048
     Dates: start: 20111216, end: 20111227
  16. ASPIRIN [Concomitant]
     Route: 048
  17. BENTYL [Concomitant]
     Route: 048
  18. CHOLESTYRAMINE RESIN [Concomitant]
     Route: 048
  19. LOMOTIL [Concomitant]
     Indication: DIARRHOEA
     Route: 048
  20. MICRO-K [Concomitant]
     Route: 048
  21. PRILOSEC [Concomitant]
     Route: 048
     Dates: start: 20111113
  22. VELCADE [Suspect]
     Route: 058
     Dates: start: 20111216, end: 20111227
  23. CREON (PANCRELIPASE) [Concomitant]
     Route: 048
  24. OXYCONTIN [Concomitant]
     Route: 048
  25. SYNTHROID [Concomitant]
     Route: 048

REACTIONS (3)
  - NEUTROPENIA [None]
  - MULTIPLE MYELOMA [None]
  - THROMBOCYTOPENIA [None]
